FAERS Safety Report 6165383-3 (Version None)
Quarter: 2009Q2

REPORT INFORMATION
  Report Type: 
  Country: None (occurrence: None)
  Receive Date: 20090423
  Receipt Date: 20090417
  Transmission Date: 20091009
  Serious: Yes (Other)
  Sender: FDA-Public Use
  Company Number: US-BRISTOL-MYERS SQUIBB COMPANY-14584478

PATIENT
  Age: 34 Year
  Sex: Male

DRUGS (12)
  1. BLEOMYCIN SULFATE [Suspect]
     Indication: HODGKIN'S DISEASE
  2. CARBOPLATIN [Suspect]
     Indication: HODGKIN'S DISEASE
  3. ETOPOSIDE [Suspect]
     Indication: HODGKIN'S DISEASE
  4. DOXORUBICIN HCL [Suspect]
     Indication: HODGKIN'S DISEASE
  5. IFOSFAMIDE [Suspect]
     Indication: HODGKIN'S DISEASE
  6. ONCOVIN [Suspect]
     Indication: HODGKIN'S DISEASE
  7. MUSTARGEN [Suspect]
     Indication: HODGKIN'S DISEASE
  8. DACARBAZINE [Suspect]
     Indication: HODGKIN'S DISEASE
  9. PREDNISONE [Suspect]
     Indication: HODGKIN'S DISEASE
  10. PROCARBAZINE [Suspect]
     Indication: HODGKIN'S DISEASE
  11. VINBLASTINE [Suspect]
     Indication: HODGKIN'S DISEASE
  12. RADIOTHERAPY [Suspect]
     Indication: HODGKIN'S DISEASE

REACTIONS (1)
  - ACUTE LYMPHOCYTIC LEUKAEMIA [None]
